FAERS Safety Report 5376179-4 (Version None)
Quarter: 2007Q3

REPORT INFORMATION
  Report Type: 
  Country: None (occurrence: None)
  Receive Date: 20070702
  Receipt Date: 20070621
  Transmission Date: 20080115
  Serious: Yes (Other)
  Sender: FDA-Public Use
  Company Number: FR-ASTRAZENECA-2007CG00974

PATIENT
  Age: 22 Year
  Sex: Female

DRUGS (2)
  1. CRESTOR [Suspect]
     Indication: HYPERCHOLESTEROLAEMIA
     Route: 048
     Dates: start: 20070101, end: 20070506
  2. YASMIN [Concomitant]
     Indication: CONTRACEPTION
     Dates: start: 20070101

REACTIONS (3)
  - BLOOD CREATINE PHOSPHOKINASE INCREASED [None]
  - CYTOLYTIC HEPATITIS [None]
  - MYALGIA [None]
